FAERS Safety Report 4421325-X (Version None)
Quarter: 2004Q3

REPORT INFORMATION
  Report Type: 
  Country: None (occurrence: None)
  Receive Date: 20040804
  Receipt Date: 20040720
  Transmission Date: 20050211
  Serious: No
  Sender: FDA-Public Use
  Company Number: 04P-130-0267713-00

PATIENT
  Age: 41 Year
  Sex: Female

DRUGS (3)
  1. KLACID (BIAXIN) (CLARITHROMYCIN) (CLARITHROMYCIN) [Suspect]
     Indication: HELICOBACTER INFECTION
     Dosage: PER ORAL
     Route: 048
     Dates: start: 20040202
  2. AMOXICILLIN [Suspect]
     Indication: HELICOBACTER INFECTION
     Dosage: PER ORAL
     Route: 048
     Dates: start: 20040202
  3. OMEPRAZOLE [Concomitant]

REACTIONS (3)
  - DYSPNOEA [None]
  - FACE OEDEMA [None]
  - URTICARIA GENERALISED [None]
